FAERS Safety Report 5819692-5 (Version None)
Quarter: 2008Q3

REPORT INFORMATION
  Report Type: 
  Country: None (occurrence: None)
  Receive Date: 20080723
  Receipt Date: 20080711
  Transmission Date: 20090109
  Serious: Yes (Hospitalization)
  Sender: FDA-Public Use
  Company Number: IN-PFIZER INC-2008044534

PATIENT
  Sex: Male
  Weight: 56 kg

DRUGS (1)
  1. BLINDED PREGABALIN (CI-1008) [Suspect]
     Indication: PARTIAL SEIZURES
     Route: 048

REACTIONS (2)
  - PARTIAL SEIZURES [None]
  - STATUS EPILEPTICUS [None]
